FAERS Safety Report 6805071 (Version 5)
Quarter: 2012Q4

REPORT INFORMATION
  Report Type: Report from Study
  Country: US (occurrence: US)
  Receive Date: 20081106
  Receipt Date: 20120921
  Transmission Date: 20130627
  Serious: Yes (Hospitalization, Other)
  Sender: FDA-Public Use
  Company Number: US-ABBOTT-08P-163-0484755-00

PATIENT
  Age: 49 None
  Sex: Male
  Weight: 90.8 kg

DRUGS (18)
  1. HUMIRA 40 MG/0.8 ML PEN [Suspect]
     Indication: ANKYLOSING SPONDYLITIS
     Route: 058
     Dates: start: 200710
  2. PAXIL [Concomitant]
     Indication: DEPRESSION
     Route: 048
     Dates: start: 200806
  3. BLOOD PRESSURE, NAME UNKNOWN [Concomitant]
     Indication: ANKYLOSING SPONDYLITIS
     Route: 048
  4. VICODIN [Concomitant]
     Indication: PAIN MANAGEMENT
     Route: 048
  5. VICODIN [Concomitant]
     Indication: ANKYLOSING SPONDYLITIS
  6. VALIUM [Concomitant]
     Indication: PAIN MANAGEMENT
  7. VALIUM [Concomitant]
     Indication: ANKYLOSING SPONDYLITIS
  8. ANTIBIOTIC, NAME UNKNOWN [Concomitant]
     Indication: INCISION SITE INFECTION
     Route: 048
     Dates: start: 2008
  9. CLONIDINE PATCH [Concomitant]
     Indication: HYPERTENSION
     Route: 062
  10. LIPITOR [Concomitant]
     Indication: BLOOD CHOLESTEROL INCREASED
  11. NIASPAN [Concomitant]
     Indication: BLOOD CHOLESTEROL INCREASED
  12. FENOFIBRATE [Concomitant]
     Indication: BLOOD CHOLESTEROL INCREASED
  13. MOEXIPRIL [Concomitant]
     Indication: HYPERTENSION
  14. SPIRONOLACTONE [Concomitant]
     Indication: HYPERTENSION
  15. TIZANIDINE [Concomitant]
     Indication: PARAPARESIS
  16. ALLOPURINOL [Concomitant]
     Indication: GOUT
  17. FLOMAX [Concomitant]
     Indication: BENIGN PROSTATIC HYPERPLASIA
  18. PAROXETINE [Concomitant]
     Indication: DEPRESSION

REACTIONS (14)
  - Spinal column stenosis [Recovered/Resolved]
  - Wound drainage [Recovered/Resolved]
  - Impaired healing [Recovered/Resolved]
  - Incision site infection [Recovered/Resolved]
  - Electrocardiogram abnormal [Unknown]
  - Hypoaesthesia [Recovered/Resolved]
  - Hypoaesthesia [Recovered/Resolved]
  - Exostosis [Recovered/Resolved]
  - Staphylococcal infection [Recovered/Resolved]
  - Urinary tract infection [Recovered/Resolved]
  - Malaise [Recovered/Resolved]
  - Renal disorder [Not Recovered/Not Resolved]
  - Paraparesis [Not Recovered/Not Resolved]
  - Protein urine present [Unknown]
